FAERS Safety Report 9915486 (Version 1)
Quarter: 2014Q1

REPORT INFORMATION
  Report Type: Spontaneous
  Country: FR (occurrence: FR)
  Receive Date: 20140221
  Receipt Date: 20140221
  Transmission Date: 20141002
  Serious: Yes (Life-Threatening)
  Sender: FDA-Public Use
  Company Number: FR-ROCHE-1349493

PATIENT
  Age: 39 Year
  Sex: Male

DRUGS (10)
  1. MABTHERA [Suspect]
     Indication: BURKITT^S LYMPHOMA
     Route: 042
     Dates: start: 20120620, end: 20120626
  2. ENDOXAN [Suspect]
     Indication: BURKITT^S LYMPHOMA
     Route: 042
     Dates: start: 20120615, end: 20120626
  3. DOXORUBICINE [Suspect]
     Indication: BURKITT^S LYMPHOMA
     Route: 042
     Dates: start: 20120620, end: 20120626
  4. ARACYTINE [Suspect]
     Indication: BURKITT^S LYMPHOMA
     Route: 042
     Dates: start: 20120618, end: 20120618
  5. DEXAMETHASONE [Suspect]
     Indication: BURKITT^S LYMPHOMA
     Route: 042
     Dates: start: 20120618, end: 20120627
  6. VINCRISTINE [Suspect]
     Indication: BURKITT^S LYMPHOMA
     Route: 042
     Dates: start: 20120615, end: 20120626
  7. TRUVADA [Concomitant]
     Route: 065
     Dates: start: 20120613
  8. ISENTRESS [Concomitant]
     Route: 065
     Dates: start: 20120613, end: 20130724
  9. TAZOCILLINE [Concomitant]
  10. TRAMADOL [Concomitant]

REACTIONS (2)
  - Bone marrow failure [Recovered/Resolved]
  - Colitis [Recovered/Resolved]
